FAERS Safety Report 6438622-9 (Version None)
Quarter: 2009Q4

REPORT INFORMATION
  Report Type: 
  Country: None (occurrence: None)
  Receive Date: 20091112
  Receipt Date: 20091030
  Transmission Date: 20100525
  Serious: Yes (Hospitalization)
  Sender: FDA-Public Use
  Company Number: SE-MYLANLABS-2009S1018913

PATIENT
  Age: 54 Year
  Sex: Male

DRUGS (3)
  1. CLOMIPRAMINE [Suspect]
     Indication: DRUG USE FOR UNKNOWN INDICATION
  2. WARAN [Concomitant]
     Indication: DRUG USE FOR UNKNOWN INDICATION
     Dates: start: 20060101
  3. CLAFORAN [Concomitant]
     Indication: DRUG USE FOR UNKNOWN INDICATION

REACTIONS (5)
  - ACUTE HEPATIC FAILURE [None]
  - BLOOD ALKALINE PHOSPHATASE INCREASED [None]
  - CARDIAC FAILURE [None]
  - MULTI-ORGAN FAILURE [None]
  - RENAL IMPAIRMENT [None]
